FAERS Safety Report 5908608-9 (Version None)
Quarter: 2008Q3

REPORT INFORMATION
  Report Type: 
  Country: None (occurrence: None)
  Receive Date: 20080930
  Receipt Date: 20080919
  Transmission Date: 20090109
  Serious: Yes (Other)
  Sender: FDA-Public Use
  Company Number: 2008S1001075

PATIENT
  Age: 21 Year
  Sex: Female
  Weight: 53.978 kg

DRUGS (4)
  1. ISOTRETINOIN [Suspect]
     Dosage: 40 MG;DAILY;ORAL, 40 MG;DAILY;ORAL, 40 MG;DAILY;ORAL
     Route: 048
     Dates: start: 20070108, end: 20070401
  2. ISOTRETINOIN [Suspect]
     Dosage: 40 MG;DAILY;ORAL, 40 MG;DAILY;ORAL, 40 MG;DAILY;ORAL
     Route: 048
     Dates: start: 20070601, end: 20070801
  3. ISOTRETINOIN [Suspect]
     Dosage: 40 MG;DAILY;ORAL, 40 MG;DAILY;ORAL, 40 MG;DAILY;ORAL
     Route: 048
     Dates: start: 20071001, end: 20071230
  4. ORAL CONTRACEPTIVE NOS [Concomitant]

REACTIONS (2)
  - DRUG EXPOSURE DURING PREGNANCY [None]
  - PREGNANCY [None]
